FAERS Safety Report 23066908 (Version 7)
Quarter: 2024Q4

REPORT INFORMATION
  Report Type: Report from Study
  Country: US (occurrence: US)
  Receive Date: 20231016
  Receipt Date: 20241206
  Transmission Date: 20250114
  Serious: Yes (Other)
  Sender: NOVARTIS
  Company Number: US-002147023-NVSC2023US219342

PATIENT
  Age: 36 Year
  Sex: Female

DRUGS (3)
  1. KESIMPTA [Suspect]
     Active Substance: OFATUMUMAB
     Indication: Relapsing multiple sclerosis
     Dosage: 20 MG, QMO
     Route: 058
     Dates: start: 20230908
  2. BACLOFEN [Concomitant]
     Active Substance: BACLOFEN
     Indication: Hypotonia
     Dosage: UNK
     Route: 065
  3. TIZANIDINE [Concomitant]
     Active Substance: TIZANIDINE
     Indication: Hypotonia
     Dosage: UNK
     Route: 065

REACTIONS (16)
  - Bronchitis bacterial [Unknown]
  - Pyrexia [Unknown]
  - Coeliac disease [Unknown]
  - Headache [Unknown]
  - Fatigue [Unknown]
  - Brain fog [Unknown]
  - Hypoaesthesia [Unknown]
  - Monoparesis [Unknown]
  - Stress [Unknown]
  - Depressed mood [Unknown]
  - Cystitis [Unknown]
  - Nausea [Unknown]
  - Vomiting [Unknown]
  - Inappropriate schedule of product administration [Unknown]
  - Dizziness [Unknown]
  - Drug ineffective [Unknown]

NARRATIVE: CASE EVENT DATE: 20230929
